FAERS Safety Report 12368918 (Version 1)
Quarter: 2016Q2

REPORT INFORMATION
  Report Type: Spontaneous
  Country: US (occurrence: US)
  Receive Date: 20160513
  Receipt Date: 20160513
  Transmission Date: 20160815
  Serious: No
  Sender: FDA-Public Use
  Company Number: US-PERRIGO-15US006609

PATIENT
  Age: 33 Year
  Sex: Male
  Weight: 83.9 kg

DRUGS (2)
  1. SULFACETAMIDE SODIUM. [Suspect]
     Active Substance: SULFACETAMIDE SODIUM
     Dosage: SMALL AMOUNT, BID
     Route: 061
     Dates: start: 201505, end: 201505
  2. SULFACETAMIDE SODIUM. [Suspect]
     Active Substance: SULFACETAMIDE SODIUM
     Indication: ROSACEA
     Dosage: SMALL AMOUNT, BID
     Route: 061
     Dates: start: 201505, end: 201505

REACTIONS (5)
  - Hypersensitivity [Recovered/Resolved]
  - Application site swelling [Recovered/Resolved]
  - Off label use [Recovered/Resolved]
  - Application site pruritus [Recovered/Resolved]
  - Application site erythema [Recovered/Resolved]

NARRATIVE: CASE EVENT DATE: 201505
